FAERS Safety Report 19705327 (Version 1)
Quarter: 2021Q3

REPORT INFORMATION
  Report Type: Spontaneous
  Country: ES (occurrence: ES)
  Receive Date: 20210816
  Receipt Date: 20210816
  Transmission Date: 20211014
  Serious: Yes (Other)
  Sender: FDA-Public Use
  Company Number: ES-MYLANLABS-2021M1051213

PATIENT
  Age: 3 Year
  Sex: Male

DRUGS (16)
  1. VALPROATE SODIUM. [Suspect]
     Active Substance: VALPROATE SODIUM
     Indication: TRISOMY 21
  2. TOPIRAMATE. [Suspect]
     Active Substance: TOPIRAMATE
     Indication: INFANTILE SPASMS
     Dosage: UNK
     Route: 065
  3. VALPROATE SODIUM. [Suspect]
     Active Substance: VALPROATE SODIUM
     Indication: INFANTILE SPASMS
     Dosage: UNK
     Route: 065
  4. ACTH [Suspect]
     Active Substance: CORTICOTROPIN
     Indication: TRISOMY 21
  5. VIGABATRIN. [Suspect]
     Active Substance: VIGABATRIN
     Indication: TRISOMY 21
  6. PYRIDOXINE [Suspect]
     Active Substance: PYRIDOXINE
     Indication: INFANTILE SPASMS
     Dosage: UNK
     Route: 065
  7. ZONISAMIDE. [Suspect]
     Active Substance: ZONISAMIDE
     Indication: TRISOMY 21
  8. PYRIDOXINE [Suspect]
     Active Substance: PYRIDOXINE
     Indication: TRISOMY 21
  9. ACTH [Suspect]
     Active Substance: CORTICOTROPIN
     Indication: INFANTILE SPASMS
     Dosage: UNK
     Route: 065
  10. PREDNISONE. [Suspect]
     Active Substance: PREDNISONE
     Indication: TRISOMY 21
  11. CARBAMAZEPINE. [Suspect]
     Active Substance: CARBAMAZEPINE
     Indication: INFANTILE SPASMS
     Dosage: UNK
     Route: 065
  12. ZONISAMIDE. [Suspect]
     Active Substance: ZONISAMIDE
     Indication: INFANTILE SPASMS
     Dosage: UNK
     Route: 065
  13. VIGABATRIN. [Suspect]
     Active Substance: VIGABATRIN
     Indication: INFANTILE SPASMS
     Dosage: UNK
     Route: 065
  14. CARBAMAZEPINE. [Suspect]
     Active Substance: CARBAMAZEPINE
     Indication: TRISOMY 21
  15. TOPIRAMATE. [Suspect]
     Active Substance: TOPIRAMATE
     Indication: TRISOMY 21
  16. PREDNISONE. [Suspect]
     Active Substance: PREDNISONE
     Indication: INFANTILE SPASMS
     Dosage: UNK
     Route: 065

REACTIONS (1)
  - Drug ineffective [Unknown]
